FAERS Safety Report 11850830 (Version 1)
Quarter: 2015Q4

REPORT INFORMATION
  Report Type: Spontaneous
  Country: US (occurrence: US)
  Receive Date: 20151218
  Receipt Date: 20151218
  Transmission Date: 20160305
  Serious: Yes (Hospitalization)
  Sender: FDA-Public Use
  Company Number: US-MEDA-2015120049

PATIENT
  Age: 76 Year
  Sex: Female
  Weight: 89 kg

DRUGS (13)
  1. LANOXIN [Concomitant]
     Active Substance: DIGOXIN
  2. REMODULIN [Suspect]
     Active Substance: TREPROSTINIL
     Indication: PULMONARY ARTERIAL HYPERTENSION
     Dosage: 0.013 MCG/KG
     Route: 041
  3. ZAROXOLYN [Concomitant]
     Active Substance: METOLAZONE
  4. OMEPRAZOLE. [Concomitant]
     Active Substance: OMEPRAZOLE
  5. COLCHICINE. [Concomitant]
     Active Substance: COLCHICINE
     Indication: GOUT
  6. ADCIRCA [Concomitant]
     Active Substance: TADALAFIL
  7. SPIRONOLACTONE. [Concomitant]
     Active Substance: SPIRONOLACTONE
  8. DEMADEX [Suspect]
     Active Substance: TORSEMIDE
     Indication: CARDIAC FAILURE CONGESTIVE
     Dates: start: 20151207
  9. MULTIVITAMINS [Concomitant]
     Active Substance: VITAMINS
  10. REMODULIN [Suspect]
     Active Substance: TREPROSTINIL
     Indication: PULMONARY ARTERIAL HYPERTENSION
     Dosage: 0.095 MCG/KG
     Route: 041
     Dates: start: 20150918
  11. ATORVASTATIN [Concomitant]
     Active Substance: ATORVASTATIN
  12. DEMADEX [Suspect]
     Active Substance: TORSEMIDE
     Indication: CARDIAC FAILURE CONGESTIVE
  13. WARFARIN [Concomitant]
     Active Substance: WARFARIN

REACTIONS (6)
  - Right ventricular failure [Not Recovered/Not Resolved]
  - Weight decreased [Unknown]
  - Diarrhoea [Unknown]
  - Condition aggravated [Not Recovered/Not Resolved]
  - Gait disturbance [Unknown]
  - Pulmonary arterial hypertension [Not Recovered/Not Resolved]

NARRATIVE: CASE EVENT DATE: 20151021
